FAERS Safety Report 16636721 (Version 3)
Quarter: 2019Q3

REPORT INFORMATION
  Report Type: Spontaneous
  Country: BR (occurrence: BR)
  Receive Date: 20190726
  Receipt Date: 20190814
  Transmission Date: 20191004
  Serious: Yes (Death, Hospitalization, Other)
  Sender: FDA-Public Use
  Company Number: BR-SA-2019SA203102

PATIENT
  Age: 42 Year
  Sex: Female

DRUGS (1)
  1. LEMTRADA [Suspect]
     Active Substance: ALEMTUZUMAB
     Indication: MULTIPLE SCLEROSIS
     Dosage: UNK
     Route: 041

REACTIONS (8)
  - General physical health deterioration [Unknown]
  - Condition aggravated [Unknown]
  - Status epilepticus [Unknown]
  - Meningioma [Unknown]
  - Intestinal obstruction [Fatal]
  - Immunosuppression [Unknown]
  - Hospitalisation [Unknown]
  - Encephalopathy [Unknown]

NARRATIVE: CASE EVENT DATE: 2019
